FAERS Safety Report 6523005-3 (Version None)
Quarter: 2009Q4

REPORT INFORMATION
  Report Type: 
  Country: None (occurrence: None)
  Receive Date: 20091222
  Receipt Date: 20091207
  Transmission Date: 20100525
  Serious: Yes (Other)
  Sender: FDA-Public Use
  Company Number: AUR-APL-2009-01514

PATIENT

DRUGS (6)
  1. STAVUDINE [Suspect]
     Indication: ACUTE HIV INFECTION
  2. LAMIVUDINE [Suspect]
     Indication: ACUTE HIV INFECTION
  3. ABACAVIR [Suspect]
     Indication: ACUTE HIV INFECTION
  4. NELFINAVIR MESYLATE [Suspect]
     Indication: ACUTE HIV INFECTION
  5. RITONAVIR [Suspect]
     Indication: ACUTE HIV INFECTION
  6. AMPRENAVIR [Suspect]
     Indication: ACUTE HIV INFECTION

REACTIONS (3)
  - CHEST PAIN [None]
  - DRUG INTOLERANCE [None]
  - INFECTION [None]
